FAERS Safety Report 21715069 (Version 2)
Quarter: 2023Q1

REPORT INFORMATION
  Report Type: Spontaneous
  Country: DE (occurrence: DE)
  Receive Date: 20221212
  Receipt Date: 20230125
  Transmission Date: 20230418
  Serious: Yes (Death, Other)
  Sender: FDA-Public Use
  Company Number: None

PATIENT
  Age: 95 Year
  Sex: Female
  Weight: 67 kg

DRUGS (7)
  1. PAXLOVID [Suspect]
     Active Substance: NIRMATRELVIR\RITONAVIR
     Indication: COVID-19 treatment
     Dosage: [PF-07321332 300 MG]/[RITONAVIR 100 MG]; 2X/DAY;
     Dates: start: 20221020, end: 20221025
  2. METFORMIN [Concomitant]
     Active Substance: METFORMIN HYDROCHLORIDE
     Indication: Type 2 diabetes mellitus
  3. ASPIRIN [Concomitant]
     Active Substance: ASPIRIN
     Dosage: (ASS 100)
  4. TORSEMIDE [Concomitant]
     Active Substance: TORSEMIDE
  5. METOPROLOL [Concomitant]
     Active Substance: METOPROLOL
     Dosage: (METOPROLOL 47.5)
  6. RAMIPRIL [Concomitant]
     Active Substance: RAMIPRIL
     Dosage: 5 MG
  7. ACETYLCYSTEINE [Concomitant]
     Active Substance: ACETYLCYSTEINE

REACTIONS (9)
  - Death [Fatal]
  - Gastrointestinal haemorrhage [Fatal]
  - Respiratory failure [Fatal]
  - Melaena [Not Recovered/Not Resolved]
  - Haematemesis [Unknown]
  - General physical health deterioration [Unknown]
  - Asthenia [Not Recovered/Not Resolved]
  - COVID-19 [Unknown]
  - Disease recurrence [Unknown]

NARRATIVE: CASE EVENT DATE: 20221030
